FAERS Safety Report 16358451 (Version 3)
Quarter: 2019Q4

REPORT INFORMATION
  Report Type: Report from Study
  Country: US (occurrence: US)
  Receive Date: 20190527
  Receipt Date: 20191231
  Transmission Date: 20200122
  Serious: Yes (Other)
  Sender: FDA-Public Use
  Company Number: PHEH2019US022157

PATIENT
  Sex: Male

DRUGS (1)
  1. ENTRESTO [Suspect]
     Active Substance: SACUBITRIL\VALSARTAN
     Indication: PRODUCT USED FOR UNKNOWN INDICATION
     Dosage: UNK
     Route: 065

REACTIONS (8)
  - Cardiac failure [Recovering/Resolving]
  - Fall [Unknown]
  - Pericardial effusion [Unknown]
  - Road traffic accident [Unknown]
  - Nerve injury [Unknown]
  - Neck injury [Unknown]
  - Visual impairment [Unknown]
  - Hypoaesthesia [Unknown]
